FAERS Safety Report 7033166-8 (Version None)
Quarter: 2010Q4

REPORT INFORMATION
  Report Type: 
  Country: None (occurrence: None)
  Receive Date: 20101004
  Receipt Date: 20100917
  Transmission Date: 20110411
  Serious: Yes (Other)
  Sender: FDA-Public Use
  Company Number: ACO_02270_2010

PATIENT
  Age: 51 Year
  Sex: Female
  Weight: 45.3597 kg

DRUGS (7)
  1. AMPYRA [Suspect]
     Indication: DYSSTASIA
     Dosage: (10 MG 1X/12 HOURS ORAL)
     Route: 048
     Dates: start: 20100820
  2. AMPYRA [Suspect]
     Indication: GAIT DISTURBANCE
     Dosage: (10 MG 1X/12 HOURS ORAL)
     Route: 048
     Dates: start: 20100820
  3. COPAXONE [Suspect]
     Indication: MULTIPLE SCLEROSIS
     Dosage: (DF)
     Dates: start: 20100723
  4. BACLOFEN [Concomitant]
  5. FLUOXETINE [Concomitant]
  6. DIAZEPAM [Concomitant]
  7. MARIJUANA [Concomitant]

REACTIONS (4)
  - DIZZINESS [None]
  - LOSS OF CONSCIOUSNESS [None]
  - NAUSEA [None]
  - VOMITING [None]
